FAERS Safety Report 11325245 (Version 2)
Quarter: 2015Q4

REPORT INFORMATION
  Report Type: Spontaneous
  Country: AU (occurrence: AU)
  Receive Date: 20150730
  Receipt Date: 20151030
  Transmission Date: 20160304
  Serious: Yes (Other)
  Sender: FDA-Public Use
  Company Number: AU-009507513-1507AUS010728

PATIENT
  Age: 23 Year
  Sex: Female

DRUGS (1)
  1. IMPLANON [Suspect]
     Active Substance: ETONOGESTREL
     Indication: CONTRACEPTION
     Route: 058

REACTIONS (3)
  - Visual field defect [Recovered/Resolved]
  - Intracranial pressure increased [Recovered/Resolved]
  - Papilloedema [Recovered/Resolved]
